FAERS Safety Report 5233849-6 (Version None)
Quarter: 2007Q1

REPORT INFORMATION
  Report Type: 
  Country: None (occurrence: None)
  Receive Date: 20070208
  Receipt Date: 20070205
  Transmission Date: 20070707
  Serious: Yes (Life-Threatening, Other)
  Sender: FDA-Public Use
  Company Number: PHRM2006TN03155

PATIENT
  Age: 39 Year
  Sex: Male
  Weight: 84 kg

DRUGS (1)
  1. VOLTARENE LP [Suspect]
     Indication: METATARSALGIA
     Dosage: 75 MG, UNK
     Route: 048
     Dates: start: 20061021, end: 20061023

REACTIONS (5)
  - CEREBROVASCULAR ACCIDENT [None]
  - FORMICATION [None]
  - HEMIPARESIS [None]
  - HYPOAESTHESIA [None]
  - TRANSIENT ISCHAEMIC ATTACK [None]
